FAERS Safety Report 19187902 (Version 1)
Quarter: 2021Q2

REPORT INFORMATION
  Report Type: Spontaneous
  Country: US (occurrence: US)
  Receive Date: 20210428
  Receipt Date: 20210428
  Transmission Date: 20210717
  Serious: Yes (Other)
  Sender: FDA-Public Use
  Company Number: US-UNITED THERAPEUTICS-UNT-2021-007166

PATIENT
  Age: 20 Year
  Sex: Female
  Weight: 68.03 kg

DRUGS (2)
  1. REMODULIN [Suspect]
     Active Substance: TREPROSTINIL
     Indication: PULMONARY ARTERIAL HYPERTENSION
     Dosage: UNK, CONTINUING
     Route: 041
     Dates: start: 20071005
  2. REMODULIN [Suspect]
     Active Substance: TREPROSTINIL
     Dosage: 0.163 ?G/KG, CONTINUING
     Route: 041

REACTIONS (1)
  - Vascular device occlusion [Unknown]

NARRATIVE: CASE EVENT DATE: 202104
